FAERS Safety Report 14604320 (Version 1)
Quarter: 2018Q1

REPORT INFORMATION
  Report Type: Spontaneous
  Country: US (occurrence: US)
  Receive Date: 20180306
  Receipt Date: 20180306
  Transmission Date: 20180509
  Serious: No
  Sender: FDA-Public Use
  Company Number: None

PATIENT
  Age: 8 Year
  Sex: Female

DRUGS (4)
  1. LANSOPRAZOLE. [Concomitant]
     Active Substance: LANSOPRAZOLE
  2. FLOVENT [Concomitant]
     Active Substance: FLUTICASONE PROPIONATE
  3. BETHKIS [Suspect]
     Active Substance: TOBRAMYCIN
     Indication: CYSTIC FIBROSIS
     Dosage: 300MG/1ML BIOL INHALATION
     Route: 055
     Dates: start: 20180305
  4. PULMOZYME [Suspect]
     Active Substance: DORNASE ALFA
     Indication: CYSTIC FIBROSIS
     Dosage: 1MG/1ML QD INHALATION
     Route: 055
     Dates: start: 20140223

REACTIONS (2)
  - Unevaluable event [None]
  - Migraine [None]

NARRATIVE: CASE EVENT DATE: 20180305
